FAERS Safety Report 9873371 (Version 2)
Quarter: 2014Q1

REPORT INFORMATION
  Report Type: Spontaneous
  Country: US (occurrence: US)
  Receive Date: 20140206
  Receipt Date: 20140224
  Transmission Date: 20141002
  Serious: Yes (Hospitalization)
  Sender: FDA-Public Use
  Company Number: US-009507513-1402USA001589

PATIENT
  Age: 60 Year
  Sex: Female

DRUGS (6)
  1. FUROSEMIDE [Suspect]
     Route: 048
  2. SPIRONOLACTONE [Suspect]
  3. LEVOTHYROXINE SODIUM [Suspect]
     Route: 048
  4. LISINOPRIL [Suspect]
     Route: 048
  5. WARFARIN [Suspect]
  6. AMIODARONE [Suspect]

REACTIONS (17)
  - Heart rate irregular [Recovered/Resolved]
  - Hyperreflexia [Recovered/Resolved]
  - Atrial fibrillation [Recovered/Resolved]
  - Blood potassium abnormal [Recovered/Resolved]
  - Carbon dioxide abnormal [Recovered/Resolved]
  - Blood urea abnormal [Recovered/Resolved]
  - Blood creatinine abnormal [Recovered/Resolved]
  - International normalised ratio abnormal [Recovered/Resolved]
  - Haematocrit decreased [Recovered/Resolved]
  - Blood pressure abnormal [Recovered/Resolved]
  - Accidental overdose [Unknown]
  - Blood product transfusion [Recovered/Resolved]
  - Mucosal dryness [Recovered/Resolved]
  - Cardiac murmur [Recovered/Resolved]
  - Electrocardiogram QRS complex prolonged [Recovered/Resolved]
  - Electrocardiogram T wave peaked [Recovered/Resolved]
  - Dialysis [Recovered/Resolved]
